FAERS Safety Report 16179459 (Version 1)
Quarter: 2019Q2

REPORT INFORMATION
  Report Type: Spontaneous
  Country: FR (occurrence: FR)
  Receive Date: 20190410
  Receipt Date: 20190410
  Transmission Date: 20190711
  Serious: Yes (Hospitalization)
  Sender: FDA-Public Use
  Company Number: FR-PFIZER INC-2019150189

PATIENT
  Age: 52 Year
  Sex: Male
  Weight: 73.2 kg

DRUGS (10)
  1. LYRICA [Suspect]
     Active Substance: PREGABALIN
     Indication: NEUROPATHY PERIPHERAL
     Dosage: 150 MG, 1X/DAY
     Route: 048
     Dates: start: 20190226, end: 20190314
  2. RIXATHON [Suspect]
     Active Substance: RITUXIMAB
     Indication: VASCULITIS NECROTISING
     Dosage: 375 MG/M2, WEEKLY
     Route: 041
     Dates: start: 20190226, end: 20190306
  3. PERINDOPRIL [Concomitant]
     Active Substance: PERINDOPRIL
     Dosage: 4 MG, 1X/DAY
     Route: 048
     Dates: start: 2016
  4. ATORVASTATINE [ATORVASTATIN] [Concomitant]
     Active Substance: ATORVASTATIN
     Indication: DYSLIPIDAEMIA
     Dosage: 10 MG, 1X/DAY
     Route: 048
     Dates: start: 2015
  5. LEVOTHYROX [Concomitant]
     Active Substance: LEVOTHYROXINE
     Indication: HYPOTHYROIDISM
     Dosage: 37.5 UG, 1X/DAY
     Route: 048
     Dates: start: 2013
  6. WELLVONE [Suspect]
     Active Substance: ATOVAQUONE
     Indication: ANTIFUNGAL PROPHYLAXIS
     Dosage: 10 ML, 1X/DAY
     Route: 048
     Dates: start: 20190227, end: 20190313
  7. UVEDOSE [Concomitant]
     Active Substance: CHOLECALCIFEROL
     Dosage: 1 DF, EVERY 3 MONTHS
     Route: 048
  8. OROCAL D3 [Concomitant]
     Active Substance: CALCIUM CARBONATE\CHOLECALCIFEROL
     Dosage: 2 DF, 1X/DAY
     Route: 048
  9. SOTALOL AF [SOTALOL HYDROCHLORIDE] [Concomitant]
     Active Substance: SOTALOL HYDROCHLORIDE
     Indication: SUPRAVENTRICULAR EXTRASYSTOLES
     Dosage: 40 MG, 1X/DAY
     Route: 048
     Dates: start: 2013
  10. CORTANCYL [Concomitant]
     Active Substance: PREDNISONE
     Indication: VASCULITIS NECROTISING
     Dosage: 35 MG, 1X/DAY
     Route: 048
     Dates: start: 2016

REACTIONS (3)
  - Eosinophilia [Recovered/Resolved]
  - Toxic skin eruption [Recovering/Resolving]
  - Rash maculo-papular [Recovering/Resolving]

NARRATIVE: CASE EVENT DATE: 20190307
